FAERS Safety Report 6841427-8 (Version None)
Quarter: 2010Q3

REPORT INFORMATION
  Report Type: 
  Country: None (occurrence: None)
  Receive Date: 20100714
  Receipt Date: 20070703
  Transmission Date: 20110219
  Serious: No
  Sender: FDA-Public Use
  Company Number: US-PFIZER INC-2007056630

PATIENT
  Sex: Female
  Weight: 131.36 kg

DRUGS (5)
  1. CHANTIX [Suspect]
     Indication: SMOKING CESSATION THERAPY
     Route: 048
     Dates: start: 20070702
  2. ATENOLOL [Suspect]
     Indication: HYPERTENSION
     Route: 048
     Dates: start: 20070702
  3. UNIRETIC [Concomitant]
     Dates: start: 20050101
  4. TYLENOL [Concomitant]
  5. MOTRIN [Concomitant]

REACTIONS (1)
  - DIARRHOEA [None]
